FAERS Safety Report 6716404-8 (Version None)
Quarter: 2010Q2

REPORT INFORMATION
  Report Type: 
  Country: None (occurrence: None)
  Receive Date: 20100507
  Receipt Date: 20100501
  Transmission Date: 20101027
  Serious: Yes (Hospitalization)
  Sender: FDA-Public Use
  Company Number: US-RB-004079-10

PATIENT
  Age: 61 Year
  Sex: Male

DRUGS (4)
  1. SUBOXONE [Suspect]
     Route: 060
     Dates: start: 20100201
  2. VALIUM [Concomitant]
     Dosage: DOSING DETAILS UNKNOWN
     Route: 065
  3. XANAX [Concomitant]
     Indication: ANXIETY
     Dosage: DOSING DETAILS UNKNOWN
     Route: 065
  4. CLONIDINE [Concomitant]
     Route: 065

REACTIONS (13)
  - ANXIETY [None]
  - BODY TEMPERATURE INCREASED [None]
  - CARDIAC FAILURE CONGESTIVE [None]
  - DELIRIUM [None]
  - DRUG WITHDRAWAL SYNDROME [None]
  - EMPHYSEMA [None]
  - ERYTHEMA [None]
  - FATIGUE [None]
  - HYPOTENSION [None]
  - PAIN [None]
  - PNEUMONIA [None]
  - RED BLOOD CELL COUNT DECREASED [None]
  - WHITE BLOOD CELL COUNT INCREASED [None]
